FAERS Safety Report 9759720 (Version 2)
Quarter: 2015Q3

REPORT INFORMATION
  Report Type: Spontaneous
  Country: US (occurrence: US)
  Receive Date: 20131216
  Receipt Date: 20150806
  Transmission Date: 20151125
  Serious: Yes (Hospitalization)
  Sender: FDA-Public Use
  Company Number: US-GILEAD-2010-0029039

PATIENT
  Age: 80 Year
  Sex: Female
  Weight: 47.4 kg

DRUGS (15)
  1. PREMARIN [Concomitant]
     Active Substance: ESTROGENS, CONJUGATED
  2. PRAVASTATIN [Concomitant]
     Active Substance: PRAVASTATIN\PRAVASTATIN SODIUM
  3. LASIX [Concomitant]
     Active Substance: FUROSEMIDE
  4. ATENOLOL. [Concomitant]
     Active Substance: ATENOLOL
  5. LETAIRIS [Suspect]
     Active Substance: AMBRISENTAN
     Indication: PULMONARY ARTERIAL HYPERTENSION
     Route: 048
     Dates: start: 20100413
  6. ETODOLAC. [Concomitant]
     Active Substance: ETODOLAC
  7. VICODIN [Concomitant]
     Active Substance: ACETAMINOPHEN\HYDROCODONE BITARTRATE
  8. ZOLOFT [Concomitant]
     Active Substance: SERTRALINE HYDROCHLORIDE
  9. LISINOPRIL. [Concomitant]
     Active Substance: LISINOPRIL
  10. TRAMADOL HCL [Concomitant]
     Active Substance: TRAMADOL HYDROCHLORIDE
  11. XANAX [Concomitant]
     Active Substance: ALPRAZOLAM
  12. ALLOPURINOL. [Concomitant]
     Active Substance: ALLOPURINOL
  13. KLOR-CON [Concomitant]
     Active Substance: POTASSIUM CHLORIDE
  14. ASPIRIN. [Concomitant]
     Active Substance: ASPIRIN
  15. ZETIA [Concomitant]
     Active Substance: EZETIMIBE

REACTIONS (1)
  - Dyspnoea [Recovering/Resolving]

NARRATIVE: CASE EVENT DATE: 20100503
